FAERS Safety Report 6383151-4 (Version None)
Quarter: 2009Q3

REPORT INFORMATION
  Report Type: 
  Country: None (occurrence: None)
  Receive Date: 20090928
  Receipt Date: 20090916
  Transmission Date: 20100115
  Serious: Yes (Death)
  Sender: FDA-Public Use
  Company Number: FABR-1000991

PATIENT
  Age: 85 Year
  Sex: Female

DRUGS (1)
  1. FABRAZYME [Suspect]
     Indication: FABRY'S DISEASE
     Dosage: INTRAVENOUS
     Route: 042
     Dates: start: 20040101, end: 20080301

REACTIONS (1)
  - RENAL FAILURE CHRONIC [None]
